FAERS Safety Report 7788445-3 (Version None)
Quarter: 2011Q3

REPORT INFORMATION
  Report Type: 
  Country: None (occurrence: None)
  Receive Date: 20110930
  Receipt Date: 20110920
  Transmission Date: 20111222
  Serious: Yes (Hospitalization)
  Sender: FDA-Public Use
  Company Number: US-UCBSA-041760

PATIENT
  Sex: Male
  Weight: 71.8 kg

DRUGS (9)
  1. LACOSAMIDE [Suspect]
     Indication: IDIOPATHIC GENERALISED EPILEPSY
     Route: 048
     Dates: start: 20110823, end: 20110918
  2. TOPAMAX [Concomitant]
     Indication: EPILEPSY
     Dosage: DAILY DOSE: 250 MG, 100 MG MORNING - 150 MG EVENING
     Route: 048
     Dates: start: 20110913
  3. FINASTERIDE [Concomitant]
     Indication: HAIR GROWTH ABNORMAL
     Route: 048
     Dates: start: 20090901
  4. ATENOLOL [Concomitant]
     Indication: HYPERTENSION
     Route: 048
  5. ZOLOFT [Concomitant]
     Indication: DEPRESSION
     Dosage: AT BEDTIME
     Route: 048
     Dates: start: 20110916
  6. CLONAZEPAM [Concomitant]
     Indication: EPILEPSY
     Route: 048
     Dates: end: 20110918
  7. CLONAZEPAM [Concomitant]
     Route: 048
     Dates: start: 20110919
  8. SIMVASTATIN [Concomitant]
     Indication: BLOOD CHOLESTEROL INCREASED
     Dosage: AT BEDTIME
     Route: 048
     Dates: start: 20110915
  9. LAMICTAL [Concomitant]
     Indication: EPILEPSY
     Route: 048
     Dates: start: 20110913

REACTIONS (1)
  - ABNORMAL BEHAVIOUR [None]
